FAERS Safety Report 5520511-5 (Version None)
Quarter: 2007Q4

REPORT INFORMATION
  Report Type: 
  Country: None (occurrence: None)
  Receive Date: 20071119
  Receipt Date: 20071106
  Transmission Date: 20080405
  Serious: Yes (Other)
  Sender: FDA-Public Use
  Company Number: GB-PFIZER INC-2007094053

PATIENT
  Age: 67 Year
  Sex: Male
  Weight: 128 kg

DRUGS (3)
  1. LYRICA [Suspect]
     Indication: BACK PAIN
     Route: 048
     Dates: start: 20070511, end: 20070911
  2. LYRICA [Suspect]
     Indication: PAIN IN EXTREMITY
  3. AMOXICILLIN [Concomitant]
     Indication: INFECTION
     Route: 048
     Dates: start: 20070612, end: 20070619

REACTIONS (6)
  - AGGRESSION [None]
  - INSOMNIA [None]
  - MOOD SWINGS [None]
  - PANIC ATTACK [None]
  - PRURITUS GENERALISED [None]
  - WEIGHT INCREASED [None]
